FAERS Safety Report 15885010 (Version 8)
Quarter: 2020Q1

REPORT INFORMATION
  Report Type: Spontaneous
  Country: US (occurrence: US)
  Receive Date: 20190129
  Receipt Date: 20200214
  Transmission Date: 20200409
  Serious: Yes (Hospitalization, Other)
  Sender: FDA-Public Use
  Company Number: US-PFIZER INC-2019040268

PATIENT
  Age: 74 Year
  Sex: Female
  Weight: 66 kg

DRUGS (5)
  1. LYRICA [Suspect]
     Active Substance: PREGABALIN
     Indication: PAIN
  2. LYRICA [Suspect]
     Active Substance: PREGABALIN
     Indication: FIBROMYALGIA
     Dosage: 75 MG, TWICE DAILY (IN THE MORNING AND AT NIGHT)
     Route: 048
  3. METOPROLOL TARTRATE. [Concomitant]
     Active Substance: METOPROLOL TARTRATE
     Indication: BLOOD PRESSURE ABNORMAL
  4. LYRICA [Suspect]
     Active Substance: PREGABALIN
     Indication: LUMBOSACRAL RADICULOPATHY
  5. METOPROLOL TARTRATE. [Concomitant]
     Active Substance: METOPROLOL TARTRATE
     Indication: HYPERTENSION
     Dosage: 50 MG, 2X/DAY
     Route: 048

REACTIONS (11)
  - Abdominal discomfort [Unknown]
  - Infection [Unknown]
  - Near death experience [Unknown]
  - Pyrexia [Unknown]
  - Polyp [Unknown]
  - Memory impairment [Recovering/Resolving]
  - Mobility decreased [Unknown]
  - Expired product administered [Unknown]
  - Vision blurred [Recovering/Resolving]
  - Hernia [Unknown]
  - Sepsis [Unknown]

NARRATIVE: CASE EVENT DATE: 201806
